FAERS Safety Report 8425173-5 (Version None)
Quarter: 2012Q2

REPORT INFORMATION
  Report Type: 
  Country: None (occurrence: None)
  Receive Date: 20120611
  Receipt Date: 20120601
  Transmission Date: 20120825
  Serious: Yes (Hospitalization)
  Sender: FDA-Public Use
  Company Number: US-US-EMD SERONO, INC.-7116301

PATIENT
  Sex: Female

DRUGS (2)
  1. LUPRON [Concomitant]
     Indication: UTERINE LEIOMYOMA
  2. REBIF [Suspect]
     Indication: MULTIPLE SCLEROSIS
     Route: 058
     Dates: start: 20100806

REACTIONS (4)
  - PAIN IN EXTREMITY [None]
  - ABORTION SPONTANEOUS [None]
  - MATERNAL EXPOSURE DURING PREGNANCY [None]
  - URINE ODOUR ABNORMAL [None]
